FAERS Safety Report 6525849-0 (Version None)
Quarter: 2010Q1

REPORT INFORMATION
  Report Type: 
  Country: None (occurrence: None)
  Receive Date: 20100104
  Receipt Date: 20091223
  Transmission Date: 20100710
  Serious: Yes (Other)
  Sender: FDA-Public Use
  Company Number: B0620806A

PATIENT
  Sex: Male
  Weight: 32 kg

DRUGS (2)
  1. RELENZA [Suspect]
     Indication: INFLUENZA
     Dosage: 10MG TWICE PER DAY
     Route: 055
     Dates: start: 20091108
  2. ANTITUSSIVE [Concomitant]
     Indication: INFLUENZA
     Dosage: 2U THREE TIMES PER DAY
     Route: 048
     Dates: start: 20091108

REACTIONS (1)
  - DEPRESSED LEVEL OF CONSCIOUSNESS [None]
